FAERS Safety Report 8347629-6 (Version None)
Quarter: 2012Q2

REPORT INFORMATION
  Report Type: 
  Country: None (occurrence: None)
  Receive Date: 20120507
  Receipt Date: 20120502
  Transmission Date: 20120825
  Serious: Yes (Hospitalization, Other)
  Sender: FDA-Public Use
  Company Number: 2011SP046655

PATIENT
  Age: 23 Year
  Sex: Female
  Weight: 64.8644 kg

DRUGS (10)
  1. NUVARING [Suspect]
     Indication: CONTRACEPTION
     Dates: start: 20060101, end: 20091019
  2. NUVARING [Suspect]
     Indication: MENORRHAGIA
     Dates: start: 20060101, end: 20091019
  3. NUVARING [Suspect]
     Indication: DYSMENORRHOEA
     Dates: start: 20060101, end: 20091019
  4. NUVARING [Suspect]
     Indication: CONTRACEPTION
     Dates: start: 20080901
  5. NUVARING [Suspect]
     Indication: MENORRHAGIA
     Dates: start: 20080901
  6. NUVARING [Suspect]
     Indication: DYSMENORRHOEA
     Dates: start: 20080901
  7. NUVARING [Suspect]
     Indication: CONTRACEPTION
     Dates: end: 20080801
  8. NUVARING [Suspect]
     Indication: MENORRHAGIA
     Dates: end: 20080801
  9. NUVARING [Suspect]
     Indication: DYSMENORRHOEA
     Dates: end: 20080801
  10. STEROIDS [Suspect]
     Indication: COLITIS
     Dates: start: 20091001

REACTIONS (43)
  - ULCER [None]
  - MOUTH ULCERATION [None]
  - DYSPNOEA EXERTIONAL [None]
  - DIZZINESS [None]
  - FATIGUE [None]
  - ILEUS [None]
  - MENSTRUATION IRREGULAR [None]
  - COMPLICATION OF DEVICE REMOVAL [None]
  - ANTIPHOSPHOLIPID ANTIBODIES POSITIVE [None]
  - PULMONARY EMBOLISM [None]
  - ENTEROCOLITIS INFECTIOUS [None]
  - ANXIETY [None]
  - DEPRESSION [None]
  - INFLAMMATORY BOWEL DISEASE [None]
  - MAY-THURNER SYNDROME [None]
  - MENORRHAGIA [None]
  - INFLAMMATION [None]
  - INJURY [None]
  - CERVICAL DYSPLASIA [None]
  - HAEMOGLOBIN DECREASED [None]
  - ABDOMINAL DISTENSION [None]
  - THROMBOSIS [None]
  - HAEMORRHAGE [None]
  - HYPERCOAGULATION [None]
  - INSOMNIA [None]
  - OBSTRUCTION [None]
  - SURGERY [None]
  - EMOTIONAL DISORDER [None]
  - STRESS [None]
  - MONONUCLEOSIS SYNDROME [None]
  - LYMPHADENOPATHY [None]
  - INTERNATIONAL NORMALISED RATIO INCREASED [None]
  - ROAD TRAFFIC ACCIDENT [None]
  - HAEMATOCRIT DECREASED [None]
  - DEEP VEIN THROMBOSIS [None]
  - HERPES ZOSTER [None]
  - COLITIS [None]
  - DYSPNOEA [None]
  - MOOD SWINGS [None]
  - INFLUENZA [None]
  - PAIN IN EXTREMITY [None]
  - ECONOMIC PROBLEM [None]
  - MIGRAINE [None]
